FAERS Safety Report 4412908-1 (Version None)
Quarter: 2004Q3

REPORT INFORMATION
  Report Type: 
  Country: None (occurrence: None)
  Receive Date: 20040730
  Receipt Date: 20040730
  Transmission Date: 20050211
  Serious: Yes (Death)
  Sender: FDA-Public Use
  Company Number: None

PATIENT
  Age: 49 Year
  Sex: Male
  Weight: 81.8289 kg

DRUGS (9)
  1. CISPLATIN [Suspect]
     Indication: TONSIL CANCER
     Dosage: 210 MG AND 207 MG IV (2 DOSES)
     Route: 042
     Dates: start: 20040607
  2. CISPLATIN [Suspect]
     Indication: TONSIL CANCER
     Dosage: 210 MG AND 207 MG IV (2 DOSES)
     Route: 042
     Dates: start: 20040628
  3. OXYCODONE HCL [Concomitant]
  4. ATIVAN [Concomitant]
  5. KESSLER'S COCKTAIL [Concomitant]
  6. SILVADENE [Concomitant]
  7. ZOFRAN [Concomitant]
  8. DECADRON [Concomitant]
  9. COMPAZINE [Concomitant]

REACTIONS (13)
  - CARDIAC ARREST [None]
  - CONTUSION [None]
  - DIZZINESS [None]
  - FALL [None]
  - HYPOTONIA [None]
  - INJURY [None]
  - JAW DISORDER [None]
  - LACERATION [None]
  - LOSS OF CONSCIOUSNESS [None]
  - MOUTH INJURY [None]
  - NERVOUS SYSTEM DISORDER [None]
  - PULMONARY EMBOLISM [None]
  - SYNCOPE [None]
